FAERS Safety Report 8776398 (Version 1)
Quarter: 2012Q4

REPORT INFORMATION
  Report Type: 
  Country: US (occurrence: US)
  Receive Date: 20120910
  Receipt Date: 20120910
  Transmission Date: 20130627
  Serious: No
  Sender: FDA-Public Use
  Company Number: US-ASTRAZENECA-2012SE57839

PATIENT
  Age: 79 Year
  Sex: Male
  Weight: 68 kg

DRUGS (11)
  1. SYMBICORT [Suspect]
     Dosage: 160/4.5 MCG, 2 PUFFS BID
     Route: 055
     Dates: start: 201101
  2. NEXIUM [Suspect]
     Route: 048
  3. PRILOSEC OTC [Suspect]
     Route: 048
  4. BRIMONIDINE TARTRATE [Concomitant]
     Indication: GLAUCOMA
  5. WARFARIN [Concomitant]
     Dosage: 1 MG AND 3 MG
  6. PRAVASTATIN SODIUM [Concomitant]
  7. FUROSEMIDE [Concomitant]
  8. SPIRONOLACTONE [Concomitant]
  9. ENALAPRIL MALEATE [Concomitant]
  10. LUMIGAN [Concomitant]
     Indication: GLAUCOMA
  11. ASPIRIN [Concomitant]

REACTIONS (6)
  - Glaucoma [Unknown]
  - Cardiac disorder [Unknown]
  - Prostatic disorder [Unknown]
  - Dysuria [Not Recovered/Not Resolved]
  - Prostatic specific antigen increased [Unknown]
  - Weight fluctuation [Unknown]
